FAERS Safety Report 5318676-3 (Version None)
Quarter: 2007Q2

REPORT INFORMATION
  Report Type: 
  Country: None (occurrence: None)
  Receive Date: 20070508
  Receipt Date: 20070503
  Transmission Date: 20071010
  Serious: Yes (Hospitalization)
  Sender: FDA-Public Use
  Company Number: DE-SANOFI-SYNTHELABO-D01200702744

PATIENT
  Sex: Female
  Weight: 58 kg

DRUGS (9)
  1. ONDANSETRON [Concomitant]
     Dates: start: 20070221, end: 20070221
  2. ALIZAPRID [Concomitant]
     Dates: start: 20070221, end: 20070221
  3. ACYCLOVIR [Concomitant]
     Dates: start: 20070223, end: 20070223
  4. PARACETAMOL [Concomitant]
     Dates: start: 20070221, end: 20070221
  5. NOVALGIN [Concomitant]
     Dates: start: 20070222, end: 20070222
  6. OXALIPLATIN [Suspect]
     Route: 042
     Dates: start: 20070221, end: 20070221
  7. FLUOROURACIL [Suspect]
     Dosage: 400 MG/M?, IV BOLUS D1+D2 FOLLOWED BY 5-FU 2400 MG/M? OVER 46-HOUR CONTINUOUS INFUSION.
     Route: 042
     Dates: start: 20070221, end: 20070223
  8. SR57746 OR PLACEBO [Suspect]
     Indication: NEUROLOGICAL SYMPTOM
     Route: 048
     Dates: start: 20061211, end: 20070307
  9. LEUCOVORIN CALCIUM [Suspect]
     Route: 042
     Dates: start: 20070221, end: 20070221

REACTIONS (1)
  - PANCYTOPENIA [None]
